FAERS Safety Report 21054499 (Version 2)
Quarter: 2023Q1

REPORT INFORMATION
  Report Type: Report from Study
  Country: EG (occurrence: EG)
  Receive Date: 20220707
  Receipt Date: 20230207
  Transmission Date: 20230418
  Serious: Yes (Other)
  Sender: FDA-Public Use
  Company Number: EG-NOVARTISPH-NVSC2022EG148376

PATIENT
  Age: 50 Year
  Sex: Female

DRUGS (8)
  1. KISQALI [Suspect]
     Active Substance: RIBOCICLIB
     Indication: Breast cancer metastatic
     Dosage: 200 MG, 3 TABLETS ONCE DAILY FOR 2 WEEKS AND 2 WEEKS FREE
     Route: 048
     Dates: start: 202202, end: 20220301
  2. KISQALI [Suspect]
     Active Substance: RIBOCICLIB
     Dosage: 3 DOSAGE FORM, QD (3 TABLETS AT ONCE DAILY FOR 21 DAYS AND ONE WEEK FREE)
     Route: 048
     Dates: start: 20220315, end: 202204
  3. KISQALI [Suspect]
     Active Substance: RIBOCICLIB
     Dosage: 3 DOSAGE FORM, QD (3 TABLETS AT ONCE DAILY FOR 21 DAYS AND ONE WEEK FREE).
     Route: 048
     Dates: start: 202206
  4. ZOMETA [Concomitant]
     Active Substance: ZOLEDRONIC ACID
     Indication: Breast cancer
     Dosage: 1 DOSAGE FORM, QMO
     Route: 042
     Dates: start: 202202
  5. ZOLADEX [Concomitant]
     Active Substance: GOSERELIN ACETATE
     Indication: Blood oestrogen increased
     Dosage: UNK, QMO
     Route: 058
     Dates: start: 2022
  6. FEMARA [Concomitant]
     Active Substance: LETROZOLE
     Indication: Breast cancer metastatic
     Dosage: 2.5 MG, QD
     Route: 048
     Dates: start: 202202
  7. MAXICAL [Concomitant]
     Indication: Supplementation therapy
     Dosage: UNK UNK, QD
     Route: 048
     Dates: start: 202202
  8. CHONDROITIN SULFATE (BOVINE)\DIMETHYL SULFONE\GLUCOSAMINE SULFATE [Concomitant]
     Active Substance: CHONDROITIN SULFATE (BOVINE)\DIMETHYL SULFONE\GLUCOSAMINE SULFATE
     Indication: Osteoarthritis
     Dosage: UNK
     Route: 048

REACTIONS (7)
  - Movement disorder [Not Recovered/Not Resolved]
  - Pain in extremity [Recovering/Resolving]
  - Hypoaesthesia [Recovering/Resolving]
  - Bone erosion [Recovering/Resolving]
  - Neoplasm [Recovering/Resolving]
  - Product availability issue [Unknown]
  - Fatigue [Unknown]

NARRATIVE: CASE EVENT DATE: 20220201
